FAERS Safety Report 20513566 (Version 1)
Quarter: 2022Q1

REPORT INFORMATION
  Report Type: Spontaneous
  Country: RU (occurrence: None)
  Receive Date: 20220224
  Receipt Date: 20220224
  Transmission Date: 20220423
  Serious: Yes (Hospitalization)
  Sender: FDA-Public Use
  Company Number: 2022A079853

PATIENT
  Age: 25 Year
  Sex: Female
  Weight: 57 kg

DRUGS (3)
  1. SEROQUEL [Suspect]
     Active Substance: QUETIAPINE FUMARATE
     Indication: Borderline personality disorder
     Route: 048
     Dates: start: 20211219, end: 20211219
  2. TRILEPTAL [Suspect]
     Active Substance: OXCARBAZEPINE
     Indication: Borderline personality disorder
     Route: 048
     Dates: start: 20211219, end: 20211219
  3. VENLAFAXINE HYDROCHLORIDE [Suspect]
     Active Substance: VENLAFAXINE HYDROCHLORIDE
     Indication: Borderline personality disorder
     Route: 048
     Dates: start: 20211219, end: 20211219

REACTIONS (4)
  - Cold sweat [Recovering/Resolving]
  - Nausea [Recovering/Resolving]
  - Fatigue [Recovering/Resolving]
  - Somnolence [Recovering/Resolving]

NARRATIVE: CASE EVENT DATE: 20211220
